FAERS Safety Report 13533176 (Version 2)
Quarter: 2021Q1

REPORT INFORMATION
  Report Type: Report from Study
  Country: JP (occurrence: JP)
  Receive Date: 20170510
  Receipt Date: 20210311
  Transmission Date: 20210419
  Serious: Yes (Death, Hospitalization)
  Sender: FDA-Public Use
  Company Number: JP-EISAI MEDICAL RESEARCH-EC-2017-025888

PATIENT
  Age: 80 Year
  Sex: Female
  Weight: 48 kg

DRUGS (12)
  1. AMLODIPINE [Concomitant]
     Active Substance: AMLODIPINE BESYLATE
     Route: 048
  2. THYRADIN S [Concomitant]
     Active Substance: LEVOTHYROXINE SODIUM
     Route: 048
     Dates: start: 20170224, end: 20170505
  3. AZILVA [Concomitant]
     Active Substance: AZILSARTAN KAMEDOXOMIL
     Route: 048
     Dates: start: 20170219, end: 20170502
  4. LENVATINIB [Suspect]
     Active Substance: LENVATINIB
     Indication: ANAPLASTIC THYROID CANCER
     Route: 048
     Dates: start: 20170217, end: 20170303
  5. GASTER [Concomitant]
     Active Substance: FAMOTIDINE
     Route: 048
     Dates: start: 20170418, end: 20170505
  6. CARBOCISTEINE [Concomitant]
     Active Substance: CARBOCYSTEINE
     Route: 048
     Dates: start: 20170306, end: 20170505
  7. CRESTOR [Concomitant]
     Active Substance: ROSUVASTATIN CALCIUM
     Route: 048
  8. ASPARA K [Concomitant]
     Active Substance: POTASSIUM ASPARTATE
     Route: 048
     Dates: start: 20170322, end: 20170505
  9. LENVATINIB [Suspect]
     Active Substance: LENVATINIB
     Route: 048
     Dates: start: 20170308, end: 20170315
  10. LENVATINIB [Suspect]
     Active Substance: LENVATINIB
     Route: 048
     Dates: start: 20170318, end: 20170505
  11. MUCOSAL [Concomitant]
     Dates: start: 20170307, end: 20170505
  12. ACETAMINOPHEN. [Concomitant]
     Active Substance: ACETAMINOPHEN
     Route: 048
     Dates: start: 20170414, end: 20170505

REACTIONS (4)
  - Decreased appetite [Not Recovered/Not Resolved]
  - Dyspnoea [Recovering/Resolving]
  - Productive cough [Not Recovered/Not Resolved]
  - Fatigue [Not Recovered/Not Resolved]

NARRATIVE: CASE EVENT DATE: 20170306
